FAERS Safety Report 14689490 (Version 2)
Quarter: 2018Q3

REPORT INFORMATION
  Report Type: Spontaneous
  Country: DE (occurrence: DE)
  Receive Date: 20180328
  Receipt Date: 20180723
  Transmission Date: 20181010
  Serious: Yes (Death, Hospitalization, Other)
  Sender: FDA-Public Use
  Company Number: DE-TEVA-2018-DE-876266

PATIENT
  Age: 71 Year
  Sex: Female
  Weight: 61 kg

DRUGS (8)
  1. L?THYROXIN [Concomitant]
     Active Substance: LEVOTHYROXINE SODIUM
     Dosage: 75 MILLIGRAM DAILY;
     Route: 048
  2. PREDNISOLONE. [Concomitant]
     Active Substance: PREDNISOLONE
     Dosage: 5 MILLIGRAM DAILY;
     Route: 048
  3. OXALIPLATIN INJECTION 50MG/10 ML+100MG/20ML [Suspect]
     Active Substance: OXALIPLATIN
     Indication: COLORECTAL ADENOCARCINOMA
     Dosage: END DATE: 30/JAN/2012
     Route: 064
     Dates: start: 20111212
  4. XELODA [Suspect]
     Active Substance: CAPECITABINE
     Dosage: 2000 MG/M2, 1200 MG/M2
     Route: 048
     Dates: start: 20111225, end: 20120130
  5. BELOC?ZOK MITE [Concomitant]
     Active Substance: METOPROLOL SUCCINATE
     Indication: HYPERTENSION
     Route: 048
  6. ACETYLSALICYLIC ACID [Concomitant]
     Active Substance: ASPIRIN
     Indication: HYPERTENSION
     Route: 048
  7. AVASTIN [Suspect]
     Active Substance: BEVACIZUMAB
     Indication: COLORECTAL ADENOCARCINOMA
     Dosage: 16/JAN/2012 2ND CYCLE
     Route: 042
     Dates: start: 20111212, end: 20120130
  8. XELODA [Suspect]
     Active Substance: CAPECITABINE
     Indication: COLORECTAL ADENOCARCINOMA
     Route: 048
     Dates: start: 20111212, end: 20111225

REACTIONS (8)
  - General physical health deterioration [Fatal]
  - Vomiting [Fatal]
  - Nausea [Fatal]
  - Fall [Fatal]
  - Febrile neutropenia [Fatal]
  - Malignant neoplasm progression [Fatal]
  - Asthenia [Fatal]
  - Diarrhoea [Fatal]

NARRATIVE: CASE EVENT DATE: 20111229
